FAERS Safety Report 7953539-6 (Version None)
Quarter: 2011Q4

REPORT INFORMATION
  Report Type: 
  Country: None (occurrence: None)
  Receive Date: 20111202
  Receipt Date: 20111129
  Transmission Date: 20120403
  Serious: Yes (Death, Other)
  Sender: FDA-Public Use
  Company Number: JP-PFIZER INC-2011288659

PATIENT
  Age: 72 Year
  Sex: Male

DRUGS (2)
  1. GEMZAR [Suspect]
     Dosage: 1500 MG DAILY
     Route: 042
  2. LYRICA [Suspect]
     Dosage: 150 MG/DAY
     Route: 048
     Dates: start: 20111118

REACTIONS (1)
  - INTERSTITIAL LUNG DISEASE [None]
